FAERS Safety Report 9477883 (Version 1)
Quarter: 2013Q3

REPORT INFORMATION
  Report Type: Spontaneous
  Country: US (occurrence: None)
  Receive Date: 20130826
  Receipt Date: 20130826
  Transmission Date: 20140515
  Serious: Yes (Other)
  Sender: FDA-Public Use
  Company Number: None

PATIENT
  Age: 72 Year
  Sex: Female

DRUGS (1)
  1. STIVARGA, 40 MG, BAYER [Suspect]
     Indication: COLON CANCER
     Dosage: BY MOUTH
     Dates: start: 20130731, end: 20130817

REACTIONS (6)
  - Rash [None]
  - Diarrhoea [None]
  - Headache [None]
  - Hypertension [None]
  - Pyrexia [None]
  - Cough [None]
